FAERS Safety Report 8267472-6 (Version None)
Quarter: 2012Q2

REPORT INFORMATION
  Report Type: 
  Country: None (occurrence: None)
  Receive Date: 20120405
  Receipt Date: 20120405
  Transmission Date: 20120825
  Serious: Yes (Hospitalization)
  Sender: FDA-Public Use
  Company Number: None

PATIENT
  Age: 62 Year
  Sex: Female
  Weight: 99.2 kg

DRUGS (15)
  1. ASPIRIN [Concomitant]
  2. VITAMIN D [Concomitant]
  3. ALBUTEROL [Concomitant]
  4. LISINOPRIL [Concomitant]
  5. ZANTAC [Concomitant]
  6. ALLOPURINOL [Concomitant]
  7. LORAZEPAM [Concomitant]
  8. LANTUS [Concomitant]
  9. PLAVIX [Concomitant]
  10. ZYPREXA [Concomitant]
  11. INTEGRILIN [Suspect]
     Indication: ACUTE MYOCARDIAL INFARCTION
     Dosage: 75 MG/100ML 12 HR(1MCG/KG/MIN) IVD RECENT
     Route: 041
  12. INTEGRILIN [Suspect]
     Indication: ACUTE CORONARY SYNDROME
     Dosage: 75 MG/100ML 12 HR(1MCG/KG/MIN) IVD RECENT
     Route: 041
  13. LIPITOR [Concomitant]
  14. TRANSDERMAL NITRO-DUR [Concomitant]
  15. TOPROL-XL [Concomitant]

REACTIONS (1)
  - THROMBOCYTOPENIA [None]
